FAERS Safety Report 7563073-3 (Version None)
Quarter: 2011Q2

REPORT INFORMATION
  Report Type: 
  Country: None (occurrence: None)
  Receive Date: 20110621
  Receipt Date: 20110621
  Transmission Date: 20111010
  Serious: Yes (Death, Hospitalization)
  Sender: FDA-Public Use
  Company Number: None

PATIENT
  Sex: Female
  Weight: 69.9 kg

DRUGS (3)
  1. TAXOL [Suspect]
     Dosage: 255MG
  2. CYCLOPHOSPHAMIDE [Suspect]
     Dosage: 1140MG
  3. DOXORUBICIN HYDROCHLORIDE [Suspect]
     Dosage: 114MG

REACTIONS (4)
  - SPLENIC INFARCTION [None]
  - GENERAL PHYSICAL HEALTH DETERIORATION [None]
  - ACUTE MYELOID LEUKAEMIA [None]
  - MYELOFIBROSIS [None]
